FAERS Safety Report 6692449-1 (Version None)
Quarter: 2010Q2

REPORT INFORMATION
  Report Type: 
  Country: None (occurrence: None)
  Receive Date: 20100422
  Receipt Date: 20100420
  Transmission Date: 20101027
  Serious: Yes (Hospitalization)
  Sender: FDA-Public Use
  Company Number: A0785400A

PATIENT
  Age: 62 Year
  Sex: Female
  Weight: 100 kg

DRUGS (9)
  1. AVANDIA [Suspect]
     Route: 048
     Dates: start: 20020322, end: 20070101
  2. GLUCOVANCE [Concomitant]
  3. LOPID [Concomitant]
  4. DIOVAN HCT [Concomitant]
  5. NOVOLOG [Concomitant]
  6. NORVASC [Concomitant]
  7. ACTOS [Concomitant]
  8. PROVENTIL [Concomitant]
  9. HORMONE REPLACEMENT THERAPY [Concomitant]

REACTIONS (3)
  - CEREBROVASCULAR ACCIDENT [None]
  - MYOCARDIAL INFARCTION [None]
  - TRANSIENT ISCHAEMIC ATTACK [None]
